FAERS Safety Report 5359947-4 (Version None)
Quarter: 2007Q2

REPORT INFORMATION
  Report Type: 
  Country: None (occurrence: None)
  Receive Date: 20070530
  Receipt Date: 20070202
  Transmission Date: 20071010
  Serious: No
  Sender: FDA-Public Use
  Company Number: 2007PV029464

PATIENT
  Age: 63 Year
  Sex: Female
  Weight: 106.1417 kg

DRUGS (1)
  1. BYETTA [Suspect]
     Indication: WEIGHT DECREASED
     Dosage: 5 MCG; BID; SC
     Route: 058
     Dates: start: 20070112

REACTIONS (1)
  - WEIGHT DECREASED [None]
